FAERS Safety Report 23422465 (Version 3)
Quarter: 2024Q1

REPORT INFORMATION
  Report Type: Spontaneous
  Country: US (occurrence: US)
  Receive Date: 20240119
  Receipt Date: 20240212
  Transmission Date: 20240410
  Serious: Yes (Other)
  Sender: FDA-Public Use
  Company Number: US-ORGANON-O2401USA001341

PATIENT
  Age: 34 Year
  Sex: Female
  Weight: 54.422 kg

DRUGS (2)
  1. NEXPLANON [Suspect]
     Active Substance: ETONOGESTREL
     Indication: Contraception
     Dosage: 1 IMPLANT, 68 MG IN THE LEFT UPPR ARM
     Route: 058
     Dates: start: 20240112, end: 20240112
  2. NEXPLANON [Concomitant]
     Active Substance: ETONOGESTREL
     Indication: Contraception
     Dosage: 1 IMPLANT
     Route: 059
     Dates: end: 20240112

REACTIONS (2)
  - Device expulsion [Recovered/Resolved]
  - Implant site scar [Unknown]

NARRATIVE: CASE EVENT DATE: 20240112
